FAERS Safety Report 9706910 (Version 1)
Quarter: 2013Q4

REPORT INFORMATION
  Report Type: Spontaneous
  Country: US (occurrence: US)
  Receive Date: 20131125
  Receipt Date: 20131125
  Transmission Date: 20140711
  Serious: No
  Sender: FDA-Public Use
  Company Number: US-PFIZER INC-2013336037

PATIENT
  Age: 57 Year
  Sex: Male
  Weight: 90.7 kg

DRUGS (2)
  1. GABAPENTIN [Suspect]
     Indication: POST HERPETIC NEURALGIA
     Dosage: 600 MG (BY TAKING TWO CAPSULES OF 300 MG AT A TIME TOGETHER), 4X/DAY
     Route: 048
     Dates: start: 201301, end: 2013
  2. GABAPENTIN [Suspect]
     Dosage: 600 MG (BY TAKING TWO CAPSULES OF 300 MG AT A TIME TOGETHER), 3X/DAY
     Dates: start: 2013, end: 20131111

REACTIONS (3)
  - Fibromyalgia [Unknown]
  - Pruritus [Recovered/Resolved]
  - Drug ineffective [Unknown]
